FAERS Safety Report 6138790-2 (Version None)
Quarter: 2009Q1

REPORT INFORMATION
  Report Type: 
  Country: None (occurrence: None)
  Receive Date: 20090331
  Receipt Date: 20090323
  Transmission Date: 20090719
  Serious: Yes (Hospitalization)
  Sender: FDA-Public Use
  Company Number: PHHY2009FR11215

PATIENT
  Sex: Female

DRUGS (7)
  1. TEGRETOL [Suspect]
     Indication: EPILEPSY
     Dosage: 300 MG, BID
     Route: 048
     Dates: end: 20081018
  2. TRILEPTAL [Suspect]
     Indication: EPILEPSY
     Dosage: 300 MG, UNK
  3. URBANYL [Concomitant]
     Dosage: UNK
  4. BISOPROLOL [Concomitant]
     Dosage: UNK
  5. CANDESARTAN CILEXETIL [Concomitant]
     Dosage: 16 MG/DAY
  6. ENOXAPARIN SODIUM [Concomitant]
     Dosage: 0.4 UNK, QD
  7. HYDROCORTISONE [Concomitant]
     Dosage: 500 MG, QD
     Route: 042
     Dates: start: 20081018, end: 20081021

REACTIONS (7)
  - ASTHENIA [None]
  - CEREBELLAR SYNDROME [None]
  - DIPLOPIA [None]
  - GAIT DISTURBANCE [None]
  - OVERDOSE [None]
  - STATUS EPILEPTICUS [None]
  - STRESS [None]
